FAERS Safety Report 4662894-4 (Version None)
Quarter: 2005Q2

REPORT INFORMATION
  Report Type: 
  Country: None (occurrence: None)
  Receive Date: 20050502
  Receipt Date: 20050211
  Transmission Date: 20051028
  Serious: Yes (Hospitalization)
  Sender: FDA-Public Use
  Company Number: 200511115US

PATIENT
  Age: 68 Year
  Sex: Male

DRUGS (1)
  1. KETEK [Suspect]
     Indication: PNEUMONIA

REACTIONS (1)
  - VISION BLURRED [None]
